FAERS Safety Report 9808925 (Version 1)
Quarter: 2014Q1

REPORT INFORMATION
  Report Type: Spontaneous
  Country: JP (occurrence: JP)
  Receive Date: 20140110
  Receipt Date: 20140110
  Transmission Date: 20141002
  Serious: Yes (Hospitalization, Other)
  Sender: FDA-Public Use
  Company Number: JP-TAKEDA-2014TJP000460

PATIENT
  Age: 70 Year
  Sex: Male

DRUGS (1)
  1. NESINA TABLETS 25MG [Suspect]
     Indication: DIABETES MELLITUS
     Dosage: 25 MG, 1 DAYS
     Route: 048

REACTIONS (3)
  - Intestinal obstruction [Recovered/Resolved]
  - Nausea [Unknown]
  - Diarrhoea [Unknown]
